FAERS Safety Report 5206475-2 (Version None)
Quarter: 2006Q4

REPORT INFORMATION
  Report Type: 
  Country: None (occurrence: None)
  Receive Date: 20061026
  Receipt Date: 20060725
  Transmission Date: 20070319
  Serious: Yes (Other)
  Sender: FDA-Public Use
  Company Number: 2006084935

PATIENT
  Age: 62 Year
  Sex: Female
  Weight: 92.0802 kg

DRUGS (7)
  1. LYRICA [Suspect]
     Indication: NEUROPATHY
     Dosage: 50 MG (50 MG, 1 IN 1 D)
     Dates: start: 20060605, end: 20060608
  2. ALLEGRA [Concomitant]
  3. NEXIUM [Concomitant]
  4. SYNTHROID [Concomitant]
  5. FOSAMAX [Concomitant]
  6. ANTI-ASTHMATICS (ANTI-ASTHMATICS) [Concomitant]
  7. MOMETASONE (MOMETASONE) [Concomitant]

REACTIONS (2)
  - AMNESIA [None]
  - FEELING DRUNK [None]
